FAERS Safety Report 8010814-7 (Version None)
Quarter: 2011Q4

REPORT INFORMATION
  Report Type: 
  Country: None (occurrence: None)
  Receive Date: 20111123
  Receipt Date: 20110811
  Transmission Date: 20120403
  Serious: No
  Sender: FDA-Public Use
  Company Number: 333449

PATIENT
  Sex: Male

DRUGS (1)
  1. VICTOZA [Suspect]
     Indication: PRODUCT USED FOR UNKNOWN INDICATION
     Dosage: 1.2 MG, QD, SUBCUTANEOUS 1.8 MG, QD, SUBCUTANEOUS
     Route: 058
     Dates: start: 20110819

REACTIONS (4)
  - DYSPEPSIA [None]
  - ERUCTATION [None]
  - ABDOMINAL DISCOMFORT [None]
  - FLATULENCE [None]
